FAERS Safety Report 19552290 (Version 1)
Quarter: 2021Q3

REPORT INFORMATION
  Report Type: Spontaneous
  Country: US (occurrence: US)
  Receive Date: 20210714
  Receipt Date: 20210714
  Transmission Date: 20211014
  Serious: Yes (Other)
  Sender: FDA-Public Use
  Company Number: US-INTRA-CELLULAR THERAPIES, INC.-2021ICT00315

PATIENT
  Sex: Female

DRUGS (1)
  1. CAPLYTA [Suspect]
     Active Substance: LUMATEPERONE

REACTIONS (5)
  - Autonomic nervous system imbalance [Unknown]
  - Feeling drunk [Unknown]
  - Hyperthermia [Unknown]
  - Diplopia [Unknown]
  - Vision blurred [Unknown]
